FAERS Safety Report 10065825 (Version 2)
Quarter: 2014Q2

REPORT INFORMATION
  Report Type: Spontaneous
  Country: US (occurrence: US)
  Receive Date: 20140408
  Receipt Date: 20140408
  Transmission Date: 20141212
  Serious: No
  Sender: FDA-Public Use
  Company Number: US-ASTELLAS-2014US001948

PATIENT
  Age: 72 Year
  Sex: Female

DRUGS (3)
  1. MYRBETRIQ [Suspect]
     Indication: NERVOUS SYSTEM DISORDER
     Dosage: 25 MG, ONCE DAILY
     Route: 048
     Dates: start: 20140210
  2. MYRBETRIQ [Suspect]
     Indication: SCAR
  3. MYRBETRIQ [Suspect]
     Indication: INCONTINENCE

REACTIONS (2)
  - Off label use [Unknown]
  - Nasopharyngitis [Unknown]
